FAERS Safety Report 21720965 (Version 1)
Quarter: 2022Q4

REPORT INFORMATION
  Report Type: Spontaneous
  Country: BE (occurrence: BE)
  Receive Date: 20221213
  Receipt Date: 20221213
  Transmission Date: 20230113
  Serious: Yes (Other)
  Sender: FDA-Public Use
  Company Number: BE-STRIDES ARCOLAB LIMITED-2022SP016640

PATIENT
  Age: 69 Year
  Sex: Female

DRUGS (11)
  1. DOXYCYCLINE [Suspect]
     Active Substance: DOXYCYCLINE
     Indication: Herpes ophthalmic
     Dosage: 200 MILLIGRAM (PER DAY)
     Route: 048
  2. DEXAMETHASONE [Suspect]
     Active Substance: DEXAMETHASONE
     Indication: Herpes ophthalmic
     Dosage: UNK (PER DAY) (EYE DROPS) (CHRONIC TREATMENT)
     Route: 047
  3. DEXAMETHASONE [Suspect]
     Active Substance: DEXAMETHASONE
     Dosage: UNK (TWICE A DAY) DROPS
     Route: 047
  4. OFLOXACIN [Suspect]
     Active Substance: OFLOXACIN
     Indication: Herpes ophthalmic
     Dosage: UNK (FOUR TIMES A DAY) (TOPICAL)
     Route: 047
  5. OFLOXACIN [Suspect]
     Active Substance: OFLOXACIN
     Dosage: UNK (POST-OPERATIVE TREATMENT)
     Route: 065
  6. ACYCLOVIR [Concomitant]
     Active Substance: ACYCLOVIR
     Indication: Antiviral prophylaxis
     Dosage: 400 MILLIGRAM (PER DAY)
     Route: 048
  7. ACYCLOVIR [Concomitant]
     Active Substance: ACYCLOVIR
     Indication: Herpes ophthalmic
     Dosage: 2.4 GRAM (PER DAY)
     Route: 048
  8. ACYCLOVIR [Concomitant]
     Active Substance: ACYCLOVIR
     Dosage: 1.6 GRAM (PER DAY)
     Route: 048
  9. GANCICLOVIR [Concomitant]
     Active Substance: GANCICLOVIR
     Indication: Antiviral treatment
     Dosage: UNK (3 TIMES PER DAY)
     Route: 065
  10. GANCICLOVIR [Concomitant]
     Active Substance: GANCICLOVIR
     Dosage: UNK (TAPERED)
     Route: 065
  11. DORZOLAMIDE\TIMOLOL [Concomitant]
     Active Substance: DORZOLAMIDE\TIMOLOL
     Indication: Herpes ophthalmic
     Dosage: UNK (TWICE A DAY)
     Route: 061

REACTIONS (4)
  - Keratitis fungal [Recovered/Resolved]
  - Corneal flap complication [Recovered/Resolved]
  - Persistent corneal epithelial defect [Recovered/Resolved]
  - Off label use [Unknown]
